APPROVED DRUG PRODUCT: ANAFRANIL
Active Ingredient: CLOMIPRAMINE HYDROCHLORIDE
Strength: 75MG
Dosage Form/Route: CAPSULE;ORAL
Application: N019906 | Product #003 | TE Code: AB
Applicant: SPECGX LLC
Approved: Dec 29, 1989 | RLD: Yes | RS: No | Type: RX